FAERS Safety Report 7955025 (Version 2)
Quarter: 2013Q2

REPORT INFORMATION
  Report Type: Spontaneous
  Country: None (occurrence: None)
  Receive Date: 20110503
  Receipt Date: 20130410
  Transmission Date: 20140414
  Serious: Yes (Death, Hospitalization)
  Sender: FDA-Public Use
  Company Number: BE-022474

PATIENT
  Age: 80 Year
  Sex: Male
  Weight: 57 kg

DRUGS (3)
  1. CHLORAMBUCIL [Suspect]
     Indication: CHRONIC LYMPHOCYTIC LEUKAEMIA
     Dosage: DAYS 1-7 EVERY 28 DAYS (10 MG/M2), ORAL
     Route: 048
     Dates: start: 20101014
  2. SODIUM BICARBONATE (SODIUM BICARBONATE) (UNKNOWN) [Concomitant]
     Indication: CHRONIC LYMPHOCYTIC LEUKAEMIA
     Dosage: I300 MG AT DAY 1,000 MG AT DAY 8 FOLLOWED BY 1000 MG EVERY 28 DAYS,NTRAVENOUS
     Route: 042
     Dates: start: 20101014
  3. DUOVENT (FENOTEROL) (UNKNOWN) [Concomitant]

REACTIONS (4)
  - Pneumonia [None]
  - Acute respiratory distress syndrome [None]
  - Chest pain [None]
  - Dyspnoea [None]
